FAERS Safety Report 11377133 (Version 1)
Quarter: 2015Q3

REPORT INFORMATION
  Report Type: Spontaneous
  Country: US (occurrence: US)
  Receive Date: 20150813
  Receipt Date: 20150813
  Transmission Date: 20151125
  Serious: No
  Sender: FDA-Public Use
  Company Number: US-GALDERMA-US15000678

PATIENT
  Age: 77 Year
  Sex: Female

DRUGS (4)
  1. EUCERIN MOISTURIZER [Concomitant]
     Indication: DRY SKIN
     Route: 061
  2. METROGEL [Suspect]
     Active Substance: METRONIDAZOLE
     Route: 061
     Dates: start: 201408
  3. UNKNOWN BAR SOAP [Concomitant]
     Indication: THERAPEUTIC SKIN CARE TOPICAL
     Route: 061
  4. METROGEL [Suspect]
     Active Substance: METRONIDAZOLE
     Indication: ROSACEA
     Route: 061
     Dates: start: 201501

REACTIONS (1)
  - Expired product administered [Not Recovered/Not Resolved]

NARRATIVE: CASE EVENT DATE: 201501
